FAERS Safety Report 19499246 (Version 1)
Quarter: 2021Q3

REPORT INFORMATION
  Report Type: Spontaneous
  Country: US (occurrence: US)
  Receive Date: 20210706
  Receipt Date: 20210706
  Transmission Date: 20211014
  Serious: No
  Sender: FDA-Public Use
  Company Number: US-TAKEDA-2021TUS040673

PATIENT
  Sex: Female

DRUGS (1)
  1. ENTYVIO [Suspect]
     Active Substance: VEDOLIZUMAB
     Indication: CROHN^S DISEASE
     Dosage: 300 MILLIGRAM
     Route: 042
     Dates: start: 2014

REACTIONS (7)
  - Rash pruritic [Unknown]
  - Peripheral swelling [Unknown]
  - Paraesthesia [Unknown]
  - Urticaria [Unknown]
  - Rash erythematous [Unknown]
  - Rash papular [Unknown]
  - Arthropod bite [Unknown]
